FAERS Safety Report 19642145 (Version 1)
Quarter: 2021Q3

REPORT INFORMATION
  Report Type: Spontaneous
  Country: US (occurrence: US)
  Receive Date: 20210730
  Receipt Date: 20210730
  Transmission Date: 20211014
  Serious: Yes (Hospitalization)
  Sender: FDA-Public Use
  Company Number: US-ELI_LILLY_AND_COMPANY-US202107009222

PATIENT
  Sex: Male

DRUGS (1)
  1. HUMALOG [Suspect]
     Active Substance: INSULIN LISPRO
     Indication: TYPE 1 DIABETES MELLITUS
     Dosage: 10?15 U, OTHER (WITH EACH MEAL)
     Route: 058

REACTIONS (5)
  - Fall [Unknown]
  - Chest pain [Unknown]
  - Speech disorder [Unknown]
  - Neck injury [Unknown]
  - Blood glucose decreased [Unknown]
